FAERS Safety Report 4378801-8 (Version None)
Quarter: 2004Q2

REPORT INFORMATION
  Report Type: 
  Country: None (occurrence: None)
  Receive Date: 20040609
  Receipt Date: 20040524
  Transmission Date: 20050107
  Serious: Yes (Life-Threatening, Hospitalization)
  Sender: FDA-Public Use
  Company Number: 200404078

PATIENT
  Age: 24 Month
  Sex: Male
  Weight: 12.1 kg

DRUGS (1)
  1. ALPHAGAN [Suspect]
     Indication: ACCIDENTAL EXPOSURE
     Dosage: 2 ML ONCE PO
     Route: 048

REACTIONS (15)
  - ACCIDENTAL EXPOSURE [None]
  - BLOOD PRESSURE DIASTOLIC DECREASED [None]
  - BRADYARRHYTHMIA [None]
  - BRADYPNOEA [None]
  - DRUG TOXICITY [None]
  - ELECTROCARDIOGRAM ABNORMAL [None]
  - ELECTROCARDIOGRAM ST SEGMENT ELEVATION [None]
  - GLASGOW COMA SCALE ABNORMAL [None]
  - HEART RATE INCREASED [None]
  - HYPOREFLEXIA [None]
  - HYPOTONIA [None]
  - LETHARGY [None]
  - PALLOR [None]
  - PULSE PRESSURE DECREASED [None]
  - SOMNOLENCE [None]
